FAERS Safety Report 4510746-2 (Version None)
Quarter: 2004Q4

REPORT INFORMATION
  Report Type: 
  Country: None (occurrence: None)
  Receive Date: 20041122
  Receipt Date: 20041116
  Transmission Date: 20050328
  Serious: Yes (Other)
  Sender: FDA-Public Use
  Company Number: CA-2004-035090

PATIENT
  Age: 54 Year
  Sex: Female
  Weight: 42.5 kg

DRUGS (1)
  1. CLIMARA [Suspect]
     Indication: MENOPAUSAL SYMPTOMS
     Dosage: 50 UG/DAY, CONT,  TRANSDERMAL
     Route: 062
     Dates: start: 19990101

REACTIONS (4)
  - BLEPHARAL PAPILLOMA [None]
  - CONTACT LENS INTOLERANCE [None]
  - FEELING HOT [None]
  - KERATITIS [None]
